FAERS Safety Report 7872709-9 (Version None)
Quarter: 2011Q4

REPORT INFORMATION
  Report Type: 
  Country: None (occurrence: None)
  Receive Date: 20111030
  Receipt Date: 20110420
  Transmission Date: 20120403
  Serious: No
  Sender: FDA-Public Use
  Company Number: US-AMGEN-USASP2011013527

PATIENT
  Age: 53 Year
  Sex: Female

DRUGS (1)
  1. ENBREL [Suspect]
     Indication: RHEUMATOID ARTHRITIS
     Dosage: 50 MG, QWK
     Dates: start: 20110303, end: 20110323

REACTIONS (12)
  - FEELING HOT [None]
  - MUSCLE SPASMS [None]
  - INJECTION SITE PAIN [None]
  - MYALGIA [None]
  - INJECTION SITE SWELLING [None]
  - INJECTION SITE ERYTHEMA [None]
  - RHEUMATOID ARTHRITIS [None]
  - DRUG INEFFECTIVE [None]
  - SKIN INFECTION [None]
  - ANXIETY [None]
  - ERYTHEMA [None]
  - LOCAL SWELLING [None]
